FAERS Safety Report 7575368-8 (Version None)
Quarter: 2011Q2

REPORT INFORMATION
  Report Type: 
  Country: None (occurrence: None)
  Receive Date: 20110627
  Receipt Date: 20110614
  Transmission Date: 20111010
  Serious: Yes (Other)
  Sender: FDA-Public Use
  Company Number: US-ELI_LILLY_AND_COMPANY-US201101003118

PATIENT
  Sex: Male

DRUGS (9)
  1. FORTEO [Suspect]
     Indication: OSTEOPOROSIS
     Dosage: 20 UG, QD
     Dates: start: 20101101
  2. CYMBALTA [Concomitant]
  3. METFORMIN HCL [Concomitant]
  4. XANAX [Concomitant]
  5. MORPHINE [Concomitant]
  6. FORTEO [Suspect]
     Dosage: 20 UG, QD
  7. FLEXERIL [Concomitant]
  8. OXYCODONE HCL [Concomitant]
  9. ZOCOR [Concomitant]

REACTIONS (6)
  - BACK PAIN [None]
  - SOFT TISSUE INFLAMMATION [None]
  - LOWER EXTREMITY MASS [None]
  - BLOOD TESTOSTERONE DECREASED [None]
  - OSTEOMYELITIS [None]
  - SOFT TISSUE INFECTION [None]
